FAERS Safety Report 10003914 (Version 2)
Quarter: 2014Q1

REPORT INFORMATION
  Report Type: Spontaneous
  Country: US (occurrence: US)
  Receive Date: 20140312
  Receipt Date: 20140312
  Transmission Date: 20141002
  Serious: Yes (Disabling, Other)
  Sender: FDA-Public Use
  Company Number: US-GE HEALTHCARE MEDICAL DIAGNOSTICS-OSCN-PR-0906S-0309

PATIENT
  Sex: Female
  Weight: 62.2 kg

DRUGS (14)
  1. OMNISCAN [Suspect]
     Indication: PRODUCT USED FOR UNKNOWN INDICATION
     Dosage: UNSPECIFIED
     Route: 042
     Dates: start: 20030626, end: 20030626
  2. OMNISCAN [Suspect]
     Indication: PRODUCT USED FOR UNKNOWN INDICATION
     Dosage: UNSPECIFIED
     Route: 042
     Dates: start: 20030722, end: 20030722
  3. OMNISCAN [Suspect]
     Indication: PRODUCT USED FOR UNKNOWN INDICATION
     Dosage: UNSPECIFIED
     Route: 042
     Dates: start: 20040613, end: 20040613
  4. OMNISCAN [Suspect]
     Indication: PRODUCT USED FOR UNKNOWN INDICATION
     Dosage: UNSPECIFIED
     Route: 042
     Dates: start: 20040616, end: 20040616
  5. OMNISCAN [Suspect]
     Indication: PRODUCT USED FOR UNKNOWN INDICATION
     Dosage: UNSPECIFIED
     Route: 042
     Dates: start: 20060225, end: 20060225
  6. EPOGEN [Concomitant]
     Indication: ANAEMIA
     Route: 058
  7. VICODIN [Concomitant]
     Indication: PAIN
  8. ATARAX [Concomitant]
     Indication: PRURITUS
  9. ASPERCREME [Concomitant]
     Indication: PRURITUS
  10. PREDNISONE [Concomitant]
     Indication: PRODUCT USED FOR UNKNOWN INDICATION
  11. TACROLIMUS [Concomitant]
     Indication: IMMUNOSUPPRESSION
  12. FERRLECIT [Concomitant]
     Indication: ANAEMIA
  13. FERRLECIT [Concomitant]
     Indication: HAEMODIALYSIS
  14. THYMOGLOBULIN [Concomitant]

REACTIONS (1)
  - Nephrogenic systemic fibrosis [Not Recovered/Not Resolved]
